FAERS Safety Report 17551374 (Version 1)
Quarter: 2020Q1

REPORT INFORMATION
  Report Type: Spontaneous
  Country: CN (occurrence: CN)
  Receive Date: 20200317
  Receipt Date: 20200317
  Transmission Date: 20200409
  Serious: Yes (Disabling)
  Sender: FDA-Public Use
  Company Number: CN-PFIZER INC-2020113040

PATIENT
  Age: 50 Year
  Sex: Male
  Weight: 65 kg

DRUGS (2)
  1. ZAVEDOS [Suspect]
     Active Substance: IDARUBICIN
     Indication: ACUTE LEUKAEMIA
     Dosage: 10 MG, 1X/DAY
     Route: 041
     Dates: start: 20200226, end: 20200227
  2. XI AI KE [Suspect]
     Active Substance: VINDESINE SULFATE
     Indication: ACUTE LEUKAEMIA
     Dosage: 4 MG, 1X/DAY
     Route: 041
     Dates: start: 20200226, end: 20200226

REACTIONS (2)
  - Full blood count decreased [Recovering/Resolving]
  - Red blood cell count increased [Recovering/Resolving]

NARRATIVE: CASE EVENT DATE: 20200303
